FAERS Safety Report 5028654-X (Version None)
Quarter: 2006Q2

REPORT INFORMATION
  Report Type: 
  Country: None (occurrence: None)
  Receive Date: 20060501
  Receipt Date: 20060227
  Transmission Date: 20061013
  Serious: No
  Sender: FDA-Public Use
  Company Number: 200611112BWH

PATIENT
  Sex: Female

DRUGS (4)
  1. NEXAVAR [Suspect]
     Indication: RENAL CELL CARCINOMA STAGE UNSPECIFIED
     Dosage: SEE IMAGE
     Route: 048
     Dates: start: 20060209, end: 20060201
  2. NEXAVAR [Suspect]
     Indication: RENAL CELL CARCINOMA STAGE UNSPECIFIED
     Dosage: SEE IMAGE
     Route: 048
     Dates: start: 20060201
  3. SYNTHROID [Concomitant]
  4. EFFEXOR [Concomitant]

REACTIONS (4)
  - COUGH [None]
  - FATIGUE [None]
  - HEADACHE [None]
  - NASOPHARYNGITIS [None]
